FAERS Safety Report 23612860 (Version 1)
Quarter: 2024Q1

REPORT INFORMATION
  Report Type: Spontaneous
  Country: FR (occurrence: FR)
  Receive Date: 20240308
  Receipt Date: 20240308
  Transmission Date: 20240409
  Serious: Yes (Life-Threatening, Hospitalization)
  Sender: FDA-Public Use
  Company Number: None

PATIENT
  Age: 67 Year
  Sex: Male

DRUGS (4)
  1. MIANSERIN [Suspect]
     Active Substance: MIANSERIN
     Indication: Insomnia
     Dosage: 10 MG, THEN 20 MG
     Route: 048
     Dates: start: 20230721
  2. MIANSERIN [Suspect]
     Active Substance: MIANSERIN
     Indication: Anxiety
     Dosage: 30 MILLIGRAM, QD (30 MG/DAY)
     Route: 048
     Dates: start: 202311
  3. LEVETIRACETAM [Suspect]
     Active Substance: LEVETIRACETAM
     Indication: Seizure prophylaxis
     Dosage: 500 MILLIGRAM, BID (MORNING AND EVENING)
     Route: 048
     Dates: start: 20210204
  4. LEVETIRACETAM [Suspect]
     Active Substance: LEVETIRACETAM
     Dosage: 250 MILLIGRAM, BID (MORNING AND EVENING)
     Route: 048
     Dates: start: 20230721

REACTIONS (1)
  - Hepatic encephalopathy [Recovered/Resolved]
